FAERS Safety Report 23729012 (Version 1)
Quarter: 2024Q2

REPORT INFORMATION
  Report Type: Spontaneous
  Country: CN (occurrence: None)
  Receive Date: 20240410
  Receipt Date: 20240410
  Transmission Date: 20240716
  Serious: Yes (Life-Threatening, Hospitalization, Other)
  Sender: FDA-Public Use
  Company Number: 2024A085648

PATIENT
  Age: 22176 Day
  Sex: Female
  Weight: 54 kg

DRUGS (2)
  1. DURVALUMAB [Suspect]
     Active Substance: DURVALUMAB
     Indication: Hepatic cancer
     Dosage: 1200.0MG UNKNOWN
     Route: 042
     Dates: start: 20230301, end: 20230301
  2. REGORAFENIB [Suspect]
     Active Substance: REGORAFENIB
     Indication: Hepatic cancer
     Route: 048
     Dates: start: 20230305, end: 20230314

REACTIONS (2)
  - Drug eruption [Recovering/Resolving]
  - Toxic epidermal necrolysis [Unknown]

NARRATIVE: CASE EVENT DATE: 20230314
